FAERS Safety Report 19714774 (Version 1)
Quarter: 2021Q3

REPORT INFORMATION
  Report Type: Spontaneous
  Country: CA (occurrence: CA)
  Receive Date: 20210818
  Receipt Date: 20210818
  Transmission Date: 20211014
  Serious: Yes (Hospitalization, Other)
  Sender: FDA-Public Use
  Company Number: CA-SUN PHARMACEUTICAL INDUSTRIES LTD-2021R1-308289

PATIENT
  Sex: Female
  Weight: 6.5 kg

DRUGS (2)
  1. ESCITALOPRAM [Suspect]
     Active Substance: ESCITALOPRAM OXALATE
     Indication: DEPRESSION
     Dosage: 10 MILLIGRAM, DAILY
     Route: 063
  2. BUPROPION. [Suspect]
     Active Substance: BUPROPION
     Indication: DEPRESSION
     Dosage: 150 MILLIGRAM, DAILY
     Route: 065

REACTIONS (6)
  - Drug interaction [Unknown]
  - Vomiting [Recovered/Resolved]
  - Exposure via breast milk [Unknown]
  - Drug level increased [Recovered/Resolved]
  - Sleep disorder [Recovered/Resolved]
  - Tonic convulsion [Recovered/Resolved]
